FAERS Safety Report 6997736-5 (Version None)
Quarter: 2010Q3

REPORT INFORMATION
  Report Type: 
  Country: None (occurrence: None)
  Receive Date: 20100919
  Receipt Date: 20100909
  Transmission Date: 20110219
  Serious: Yes (Hospitalization)
  Sender: FDA-Public Use
  Company Number: PHHY2009AU38774

PATIENT
  Sex: Female

DRUGS (1)
  1. ACLASTA [Suspect]
     Dosage: 5 MG
     Dates: start: 20090909

REACTIONS (10)
  - ARTHRALGIA [None]
  - BODY TEMPERATURE INCREASED [None]
  - HEADACHE [None]
  - HEART RATE INCREASED [None]
  - HEART RATE IRREGULAR [None]
  - INFLUENZA LIKE ILLNESS [None]
  - MYALGIA [None]
  - NEPHROLITHIASIS [None]
  - PAIN [None]
  - PYREXIA [None]
